FAERS Safety Report 7905275-X (Version None)
Quarter: 2011Q4

REPORT INFORMATION
  Report Type: 
  Country: None (occurrence: None)
  Receive Date: 20111109
  Receipt Date: 20110729
  Transmission Date: 20120403
  Serious: No
  Sender: FDA-Public Use
  Company Number: US-BAYER-2011-068369

PATIENT
  Age: 81 Year
  Sex: Female
  Weight: 63 kg

DRUGS (11)
  1. LIPITOR [Concomitant]
  2. ASACOL [Concomitant]
  3. VITAMIN B COMPLEX CAP [Concomitant]
  4. NAPROXEN (ALEVE) [Suspect]
     Indication: ARTHRITIS
     Dosage: 1 DF, BID
     Route: 048
  5. COREG [Concomitant]
  6. ASPIRIN [Concomitant]
     Route: 048
  7. FISH OIL [Concomitant]
  8. NORVASC [Concomitant]
  9. ENALAPRIL MALEATE [Concomitant]
  10. VITAMIN D [Concomitant]
  11. MULTI-VITAMINS [Concomitant]

REACTIONS (3)
  - ASTHENIA [None]
  - FEELING ABNORMAL [None]
  - DRUG INEFFECTIVE [None]
